FAERS Safety Report 9023957 (Version 1)
Quarter: 2013Q1

REPORT INFORMATION
  Report Type: Spontaneous
  Country: FR (occurrence: FR)
  Receive Date: 20130121
  Receipt Date: 20130121
  Transmission Date: 20140127
  Serious: Yes (Hospitalization)
  Sender: FDA-Public Use
  Company Number: FR-BRISTOL-MYERS SQUIBB COMPANY-17289216

PATIENT
  Age: 63 Year
  Sex: Female

DRUGS (1)
  1. ONGLYZA TABS 5 MG [Suspect]
     Indication: TYPE 2 DIABETES MELLITUS
     Dosage: FORMULATION-ONGLYZA 5MG FILM-COATED TAB
     Route: 048
     Dates: start: 20121205, end: 20121206

REACTIONS (2)
  - Fatigue [Recovered/Resolved]
  - Malaise [Recovered/Resolved]
